FAERS Safety Report 5752356-5 (Version None)
Quarter: 2008Q2

REPORT INFORMATION
  Report Type: 
  Country: None (occurrence: None)
  Receive Date: 20080529
  Receipt Date: 20080516
  Transmission Date: 20081010
  Serious: Yes (Other)
  Sender: FDA-Public Use
  Company Number: GB-BAUSCH-2008BL002215

PATIENT
  Age: 46 Year
  Sex: Male

DRUGS (6)
  1. DEXAMETHASONE SODIUM PHOSPHATE [Suspect]
     Indication: EYE INFLAMMATION
     Route: 047
  2. DEXAMETHASONE SODIUM PHOSPHATE [Suspect]
     Indication: CORNEAL EPITHELIUM DEFECT
     Route: 047
  3. DEXAMETHASONE SODIUM PHOSPHATE [Suspect]
     Route: 047
  4. DEXAMETHASONE SODIUM PHOSPHATE [Suspect]
     Route: 047
  5. TIMOLOL MSD [Suspect]
     Indication: CORNEAL EPITHELIUM DEFECT
     Route: 047
  6. OFLOXACIN [Suspect]
     Indication: CORNEAL EPITHELIUM DEFECT
     Route: 047

REACTIONS (3)
  - CORNEAL DEGENERATION [None]
  - CORNEAL DEPOSITS [None]
  - VISUAL ACUITY REDUCED [None]
